FAERS Safety Report 24430934 (Version 3)
Quarter: 2024Q4

REPORT INFORMATION
  Report Type: Report from Study
  Country: US (occurrence: US)
  Receive Date: 20241014
  Receipt Date: 20241024
  Transmission Date: 20250114
  Serious: Yes (Other)
  Sender: ABBVIE
  Company Number: US-ABBVIE-5958668

PATIENT
  Age: 54 Year
  Sex: Female
  Weight: 58.966 kg

DRUGS (3)
  1. CREON [Suspect]
     Active Substance: PANCRELIPASE AMYLASE\PANCRELIPASE LIPASE\PANCRELIPASE PROTEASE
     Indication: Pancreatic failure
     Dosage: FREQUENCY: 1 CAPSULE PER MEAL AND SNACKS,?FORM STRENGTH: 24000 UNIT
     Route: 048
     Dates: start: 20240401, end: 20241010
  2. BACTRIM [Concomitant]
     Active Substance: SULFAMETHOXAZOLE\TRIMETHOPRIM
     Indication: Acne
  3. LEVOTHYROXINE [Concomitant]
     Active Substance: LEVOTHYROXINE
     Indication: Autoimmune thyroiditis
     Dosage: 150 MCG

REACTIONS (6)
  - Loss of consciousness [Not Recovered/Not Resolved]
  - Hypoglycaemia [Recovered/Resolved]
  - Acne [Recovering/Resolving]
  - Pruritus [Recovering/Resolving]
  - Dermatitis acneiform [Not Recovered/Not Resolved]
  - Rash pruritic [Not Recovered/Not Resolved]

NARRATIVE: CASE EVENT DATE: 20240401
